FAERS Safety Report 7163079-2 (Version None)
Quarter: 2010Q4

REPORT INFORMATION
  Report Type: 
  Country: None (occurrence: None)
  Receive Date: 20101202
  Receipt Date: 20101122
  Transmission Date: 20110411
  Serious: Yes (Hospitalization, Other)
  Sender: FDA-Public Use
  Company Number: 2010AC000310

PATIENT
  Age: 82 Year
  Sex: Female

DRUGS (32)
  1. DIGOXIN [Suspect]
     Indication: PRODUCT USED FOR UNKNOWN INDICATION
     Dosage: 0.25 MG;QD;PO
     Route: 048
     Dates: start: 20060301, end: 20080601
  2. DIGOXIN [Suspect]
     Indication: PRODUCT USED FOR UNKNOWN INDICATION
     Dosage: 0.25 MG;QD;PO
     Route: 048
     Dates: start: 20070809, end: 20090101
  3. VITAMIN E [Concomitant]
  4. METFORMIN [Concomitant]
  5. METOPROLOL TARTRATE [Concomitant]
  6. COZAAR [Concomitant]
  7. HYDROCHLOROTHIAZIDE [Concomitant]
  8. NORVASC [Concomitant]
  9. LIPITOR [Concomitant]
  10. PLAVIX [Concomitant]
  11. ASPIRIN [Concomitant]
  12. PAROXETINE HCL [Concomitant]
  13. ALPRAZOLAM [Concomitant]
  14. NIACIN [Concomitant]
  15. LOVAZA [Concomitant]
  16. COQ10 [Concomitant]
  17. GLUCOSAMINE [Concomitant]
  18. IMDUR [Concomitant]
  19. OMEPRAZOLE [Concomitant]
  20. VITAMIN B-12 [Concomitant]
  21. INTEGRILIN [Concomitant]
  22. LOVENOX [Concomitant]
  23. INSULIN [Concomitant]
  24. NITROGLYCERIN [Concomitant]
  25. LOPRESSOR [Concomitant]
  26. ZOCOR [Concomitant]
  27. WARFARIN [Concomitant]
  28. POTASSIUM [Concomitant]
  29. FUROSEMIDE [Concomitant]
  30. COLACE [Concomitant]
  31. ANCEF [Concomitant]
  32. MOM [Concomitant]

REACTIONS (17)
  - ANGINA UNSTABLE [None]
  - ANXIETY [None]
  - ASTHENIA [None]
  - ATRIAL FIBRILLATION [None]
  - BLOOD CULTURE POSITIVE [None]
  - BLOOD GLUCOSE INCREASED [None]
  - BLOOD TRIGLYCERIDES INCREASED [None]
  - CARDIAC DISORDER [None]
  - ECONOMIC PROBLEM [None]
  - FLUID OVERLOAD [None]
  - INJECTION SITE CELLULITIS [None]
  - MULTIPLE INJURIES [None]
  - PAIN [None]
  - STAPHYLOCOCCAL BACTERAEMIA [None]
  - STAPHYLOCOCCAL INFECTION [None]
  - URINARY TRACT INFECTION [None]
  - VENTRICULAR TACHYCARDIA [None]
